FAERS Safety Report 5595622-9 (Version None)
Quarter: 2008Q1

REPORT INFORMATION
  Report Type: 
  Country: None (occurrence: None)
  Receive Date: 20080116
  Receipt Date: 20080116
  Transmission Date: 20080703
  Serious: Yes (Hospitalization, Disabling)
  Sender: FDA-Public Use
  Company Number: None

PATIENT
  Age: 73 Year
  Sex: Male
  Weight: 93 kg

DRUGS (3)
  1. BEVACIZUMAB 10MG/KG GENENTECH [Suspect]
     Indication: PANCREATIC CARCINOMA METASTATIC
     Dosage: 930MG Q2WKS IV
     Route: 042
  2. GEMCITABINE [Concomitant]
  3. DOCETAXEL [Concomitant]

REACTIONS (3)
  - BILE DUCT OBSTRUCTION [None]
  - CHOLANGITIS [None]
  - SEPSIS [None]
